FAERS Safety Report 9295806 (Version 2)
Quarter: 2013Q2

REPORT INFORMATION
  Report Type: Spontaneous
  Country: JP (occurrence: JP)
  Receive Date: 20130517
  Receipt Date: 20130614
  Transmission Date: 20140414
  Serious: Yes (Other)
  Sender: FDA-Public Use
  Company Number: JP-PFIZER INC-2013119519

PATIENT
  Age: 79 Year
  Sex: Female
  Weight: 41 kg

DRUGS (10)
  1. LYRICA [Suspect]
     Indication: CANCER PAIN
     Dosage: 25 MG, 2X/DAY
     Route: 048
     Dates: start: 20130411, end: 20130412
  2. LYRICA [Suspect]
     Indication: HYPOAESTHESIA
  3. OXYCONTIN [Concomitant]
     Indication: CANCER PAIN
     Dosage: 5 MG, 2X/DAY
     Dates: start: 20130323
  4. LOXONIN [Concomitant]
     Indication: CANCER PAIN
     Dosage: 60 MG, 3X/DAY
     Dates: start: 20120510
  5. ATELEC [Concomitant]
     Indication: HYPERTENSION
     Dosage: 10 MG, 2X/DAY
     Dates: start: 20040831
  6. CARDENALIN [Concomitant]
     Indication: HYPERTENSION
     Dosage: 2 MG, 1X/DAY
     Dates: start: 20111123
  7. OLMETEC [Concomitant]
     Indication: HYPERTENSION
     Dosage: 20 MG, 2X/DAY
     Dates: start: 20111110
  8. BASEN OD [Concomitant]
     Indication: DIABETES MELLITUS
     Dosage: 0.2 MG, 3X/DAY
     Dates: start: 20050125
  9. GLACTIV [Concomitant]
     Indication: DIABETES MELLITUS
     Dosage: 25 MG, 1X/DAY
     Dates: start: 20111110
  10. METGLUCO [Concomitant]
     Indication: DIABETES MELLITUS
     Dosage: 250 MG, 2X/DAY
     Dates: start: 20111124

REACTIONS (5)
  - Hypoglycaemia [Unknown]
  - Dyspnoea [Recovered/Resolved]
  - Oxygen saturation decreased [Recovered/Resolved]
  - Somnolence [Recovered/Resolved]
  - Off label use [Unknown]
